FAERS Safety Report 14450546 (Version 2)
Quarter: 2018Q2

REPORT INFORMATION
  Report Type: Spontaneous
  Country: US (occurrence: US)
  Receive Date: 20180129
  Receipt Date: 20180525
  Transmission Date: 20180711
  Serious: No
  Sender: FDA-Public Use
  Company Number: US-009507513-1801USA003749

PATIENT

DRUGS (2)
  1. CALCIUM (UNSPECIFIED) [Suspect]
     Active Substance: CALCIUM
  2. FOSAMAX [Suspect]
     Active Substance: ALENDRONATE SODIUM
     Route: 048

REACTIONS (1)
  - Contraindicated product administered [Unknown]
